FAERS Safety Report 4852057-1 (Version None)
Quarter: 2005Q4

REPORT INFORMATION
  Report Type: 
  Country: None (occurrence: None)
  Receive Date: 20051213
  Receipt Date: 20041116
  Transmission Date: 20060501
  Serious: Yes (Hospitalization)
  Sender: FDA-Public Use
  Company Number: CA-ROCHE-386588

PATIENT
  Age: 53 Year
  Sex: Male
  Weight: 70.7 kg

DRUGS (24)
  1. DACLIZUMAB [Suspect]
     Route: 042
     Dates: start: 20041005, end: 20041005
  2. DACLIZUMAB [Suspect]
     Dosage: A TOTAL OF 4 DOSES.
     Route: 042
     Dates: start: 20041006, end: 20041202
  3. CELLCEPT [Suspect]
     Route: 048
     Dates: start: 20041006, end: 20041114
  4. CELLCEPT [Suspect]
     Route: 048
  5. CELLCEPT [Suspect]
     Route: 048
  6. CYCLOSPORINE [Suspect]
     Dosage: FREQUENCY REPORTED AS DIE.
     Route: 048
     Dates: start: 20041006
  7. CYCLOSPORINE [Suspect]
     Route: 048
  8. CYCLOSPORINE [Suspect]
     Route: 048
  9. PREDNISONE [Suspect]
     Route: 048
     Dates: start: 20041012
  10. PREDNISONE [Suspect]
     Route: 048
  11. PREDNISONE [Suspect]
     Route: 048
  12. PANTOPRAZOLE SODIUM [Concomitant]
     Route: 048
     Dates: start: 20041011
  13. LIPITOR [Concomitant]
     Route: 048
     Dates: start: 20041215
  14. VALCYTE [Concomitant]
     Route: 048
     Dates: end: 20050115
  15. ARANESP [Concomitant]
     Route: 058
     Dates: start: 20041014
  16. NORVASC [Concomitant]
     Route: 048
     Dates: start: 20041009
  17. THIAZIDE [Concomitant]
     Dosage: FREQUENCY: DIE
     Route: 048
     Dates: end: 20041014
  18. SEPTRA [Concomitant]
     Route: 048
     Dates: start: 20041007
  19. ACTONEL [Concomitant]
     Route: 048
  20. LOPRESSOR [Concomitant]
     Route: 048
     Dates: start: 20041009
  21. CALCIUM GLUCONATE [Concomitant]
     Route: 048
  22. LASIX [Concomitant]
     Dosage: 80 MG STOPPED ON 25 FEBRUARY 2005.
     Route: 048
     Dates: start: 20041127
  23. PHOSPHATE [Concomitant]
     Dosage: DOSE OF 1000 MG A DAY STARTED ON 22 NOVEMBER 2004.
     Route: 048
  24. AMOXICILLIN AND CLAVULANATE POTASSIUM [Concomitant]
     Dates: start: 20041118, end: 20041125

REACTIONS (12)
  - ANASTOMOTIC COMPLICATION [None]
  - COMPLICATIONS OF TRANSPLANTED KIDNEY [None]
  - DEHYDRATION [None]
  - DIARRHOEA [None]
  - GASTROENTERITIS VIRAL [None]
  - OBSTRUCTION [None]
  - POST PROCEDURAL COMPLICATION [None]
  - PROCEDURAL COMPLICATION [None]
  - RENAL FAILURE ACUTE [None]
  - URINARY TRACT INFECTION [None]
  - URINARY TRACT INFECTION ENTEROCOCCAL [None]
  - URINOMA [None]
